FAERS Safety Report 20450432 (Version 2)
Quarter: 2022Q1

REPORT INFORMATION
  Report Type: Spontaneous
  Country: CA (occurrence: CA)
  Receive Date: 20220209
  Receipt Date: 20220316
  Transmission Date: 20220423
  Serious: Yes (Other)
  Sender: FDA-Public Use
  Company Number: CA-PFIZER INC-202101671360

PATIENT
  Age: 70 Year
  Sex: Female
  Weight: 98 kg

DRUGS (10)
  1. RUXIENCE [Suspect]
     Active Substance: RITUXIMAB-PVVR
     Indication: Rheumatoid arthritis
     Dosage: 1000 MG, DAY 1 AND DAY 15
     Dates: start: 20211216
  2. RUXIENCE [Suspect]
     Active Substance: RITUXIMAB-PVVR
     Dosage: 1000 MG, DAY 1 AND DAY 15
     Dates: start: 20211230, end: 20211230
  3. AMLODIPINE [Concomitant]
     Active Substance: AMLODIPINE BESYLATE
     Dosage: 7.5 MG, EVERY MORNING
     Route: 065
  4. ASPIRIN [Concomitant]
     Active Substance: ASPIRIN
     Dosage: UNK
  5. CALCIUM [Concomitant]
     Active Substance: CALCIUM
     Dosage: UNK
  6. MAGNESIUM [Concomitant]
     Active Substance: MAGNESIUM
     Dosage: UNK
  7. SYMBICORT [Concomitant]
     Active Substance: BUDESONIDE\FORMOTEROL FUMARATE DIHYDRATE
     Dosage: UNK
  8. TYLENOL ARTHRITIS PAIN [Concomitant]
     Active Substance: ACETAMINOPHEN
     Dosage: 1300 MG, 2X/DAY
     Route: 065
  9. MULBERRY [MORUS ALBA] [Concomitant]
     Dosage: UNK
  10. CRANBERRY [Concomitant]
     Active Substance: CRANBERRY
     Dosage: UNK

REACTIONS (10)
  - Mass [Unknown]
  - Abdominal pain upper [Unknown]
  - Breast swelling [Unknown]
  - Nausea [Unknown]
  - Stomatitis [Unknown]
  - Hiatus hernia [Unknown]
  - Oral discomfort [Unknown]
  - Aortic disorder [Not Recovered/Not Resolved]
  - Gastric disorder [Not Recovered/Not Resolved]
  - Pain [Not Recovered/Not Resolved]
